FAERS Safety Report 9258627 (Version 2)
Quarter: 2013Q2

REPORT INFORMATION
  Report Type: Spontaneous
  Country: NL (occurrence: NL)
  Receive Date: 20130426
  Receipt Date: 20130520
  Transmission Date: 20140414
  Serious: Yes (Other)
  Sender: FDA-Public Use
  Company Number: NL-ABBOTT-13P-114-1081094-00

PATIENT
  Age: 86 Year
  Sex: Male

DRUGS (5)
  1. LUCRIN [Suspect]
     Indication: BREAST CANCER
     Route: 058
     Dates: start: 20120404
  2. SIMVASTATIN [Suspect]
     Indication: PRODUCT USED FOR UNKNOWN INDICATION
     Dates: start: 200703, end: 20130110
  3. PERINDOPRIL ERBUMINE [Suspect]
     Indication: CARDIAC DISORDER
     Route: 048
     Dates: start: 20120706
  4. ACETYLSALICYLZUUR [Concomitant]
     Indication: PRODUCT USED FOR UNKNOWN INDICATION
     Dosage: DISPERTABLET
     Route: 048
  5. OMEPRAZOL [Concomitant]
     Indication: PRODUCT USED FOR UNKNOWN INDICATION
     Dosage: CAPSULE MSR
     Route: 048
     Dates: start: 20130113

REACTIONS (4)
  - Tendon rupture [Not Recovered/Not Resolved]
  - Malaise [Unknown]
  - Tendonitis [Recovered/Resolved]
  - Muscular weakness [Unknown]
